FAERS Safety Report 21468775 (Version 2)
Quarter: 2022Q4

REPORT INFORMATION
  Report Type: Report from Study
  Country: US (occurrence: US)
  Receive Date: 20221018
  Receipt Date: 20221021
  Transmission Date: 20230113
  Serious: Yes (Hospitalization)
  Sender: FDA-Public Use
  Company Number: US-BoehringerIngelheim-2022-BI-169704

PATIENT
  Age: 72 Year
  Sex: Male

DRUGS (10)
  1. OFEV [Suspect]
     Active Substance: NINTEDANIB
     Indication: Idiopathic pulmonary fibrosis
     Route: 048
     Dates: start: 20171210, end: 2022
  2. OFEV [Suspect]
     Active Substance: NINTEDANIB
     Indication: Pulmonary arterial hypertension
  3. OFEV [Suspect]
     Active Substance: NINTEDANIB
     Indication: Interstitial lung disease
  4. OFEV [Suspect]
     Active Substance: NINTEDANIB
     Indication: Hypoxia
  5. TYVASO [Concomitant]
     Active Substance: TREPROSTINIL
     Indication: Pulmonary arterial hypertension
     Dosage: 0.6MG/ML 4 BREATHS INHALED
     Route: 055
     Dates: start: 20220607
  6. TYVASO [Concomitant]
     Active Substance: TREPROSTINIL
     Indication: Hypoxia
     Dosage: STRENGTH: 0.6MG/ML?INHALES 3 BREATHS
     Route: 055
  7. TYVASO [Concomitant]
     Active Substance: TREPROSTINIL
     Indication: Pulmonary fibrosis
     Dosage: 0.6MG/ML 5 BREATHS INHALED
     Route: 055
     Dates: start: 202206
  8. TYVASO [Concomitant]
     Active Substance: TREPROSTINIL
     Indication: Interstitial lung disease
     Dosage: 0.6MG/ML 7 BREATHS INHALED
     Route: 055
  9. TYVASO [Concomitant]
     Active Substance: TREPROSTINIL
     Dosage: 0.6MG/ML 8 BREATHS INHALED
     Route: 055
     Dates: start: 20220614
  10. TYVASO [Concomitant]
     Active Substance: TREPROSTINIL
     Dosage: 0.6MG/ML 9 BREATHS
     Route: 055
     Dates: start: 202206

REACTIONS (21)
  - Respiratory tract infection [Unknown]
  - Constipation [Not Recovered/Not Resolved]
  - Abdominal distension [Not Recovered/Not Resolved]
  - Localised oedema [Recovering/Resolving]
  - Hypoxia [Recovered/Resolved]
  - Nasal congestion [Not Recovered/Not Resolved]
  - Cough [Not Recovered/Not Resolved]
  - Nausea [Not Recovered/Not Resolved]
  - Flatulence [Not Recovered/Not Resolved]
  - Flushing [Unknown]
  - Epistaxis [Unknown]
  - Asthenia [Unknown]
  - Somnolence [Unknown]
  - Decreased appetite [Unknown]
  - Decreased activity [Not Recovered/Not Resolved]
  - Weight increased [Unknown]
  - Sputum discoloured [Unknown]
  - Peripheral swelling [Recovered/Resolved]
  - Intentional product use issue [Unknown]
  - Haemorrhage [Unknown]
  - Malaise [Unknown]

NARRATIVE: CASE EVENT DATE: 20220101
